FAERS Safety Report 6448039-9 (Version None)
Quarter: 2009Q4

REPORT INFORMATION
  Report Type: 
  Country: None (occurrence: None)
  Receive Date: 20091120
  Receipt Date: 20091113
  Transmission Date: 20100525
  Serious: Yes (Death)
  Sender: FDA-Public Use
  Company Number: CN-ROCHE-668727

PATIENT
  Age: 73 Year
  Sex: Male
  Weight: 80 kg

DRUGS (1)
  1. XELODA [Suspect]
     Indication: GASTRIC CANCER
     Dosage: DOSAGE WAS UNKNOWN
     Route: 048
     Dates: start: 20090601, end: 20091020

REACTIONS (1)
  - METASTASES TO CENTRAL NERVOUS SYSTEM [None]
